FAERS Safety Report 8227811-9 (Version None)
Quarter: 2012Q1

REPORT INFORMATION
  Report Type: 
  Country: None (occurrence: None)
  Receive Date: 20120322
  Receipt Date: 20120313
  Transmission Date: 20120608
  Serious: Yes (Hospitalization, Other)
  Sender: FDA-Public Use
  Company Number: DE-ROCHE-1049743

PATIENT
  Age: 58 Year
  Sex: Female

DRUGS (6)
  1. PEGASYS [Suspect]
     Indication: HEPATITIS C
     Dates: start: 20111107
  2. REBETOL [Suspect]
     Indication: HEPATITIS C
     Dosage: 1000-1200MG DAILY
     Dates: start: 20111107
  3. FLUOXETINE HCL [Concomitant]
  4. VICTRELIS [Suspect]
     Indication: HEPATITIS C
     Dates: start: 20111212
  5. PANTOPRAZOLE [Concomitant]
  6. DOXEPIN HCL [Concomitant]

REACTIONS (9)
  - VOMITING [None]
  - WHITE BLOOD CELL COUNT DECREASED [None]
  - HAEMOGLOBIN DECREASED [None]
  - ASTHENIA [None]
  - URINARY TRACT INFECTION [None]
  - NAUSEA [None]
  - INFECTION [None]
  - INFLUENZA LIKE ILLNESS [None]
  - PNEUMONIA [None]
